FAERS Safety Report 9538769 (Version 1)
Quarter: 2013Q3

REPORT INFORMATION
  Report Type: Spontaneous
  Country: US (occurrence: None)
  Receive Date: 20130917
  Receipt Date: 20130917
  Transmission Date: 20140515
  Serious: Yes (Life-Threatening, Hospitalization)
  Sender: FDA-Public Use
  Company Number: USA/USA/13/0034508

PATIENT
  Age: 66 Year
  Sex: Male

DRUGS (2)
  1. LEVETIRACETAM [Suspect]
     Indication: CONVULSION
     Dosage: 500 MG, 1 IN 1 D, UNKNOWN
     Dates: start: 2012
  2. INSULIN (INSULIN) [Suspect]
     Indication: PRODUCT USED FOR UNKNOWN INDICATION
     Dosage: 80 IU, 1 IN 1 TOTAL, UNKNOWN

REACTIONS (14)
  - Hyperglycaemia [None]
  - Hypocalcaemia [None]
  - Anaemia [None]
  - Atrioventricular block first degree [None]
  - Electrocardiogram QT prolonged [None]
  - Grand mal convulsion [None]
  - Mental status changes [None]
  - Major depression [None]
  - Suicide attempt [None]
  - Overdose [None]
  - Hypoglycaemia [None]
  - Hypokalaemia [None]
  - Blood creatine phosphokinase increased [None]
  - Treatment noncompliance [None]
